FAERS Safety Report 26096302 (Version 1)
Quarter: 2025Q4

REPORT INFORMATION
  Report Type: Spontaneous
  Country: JP (occurrence: JP)
  Receive Date: 20251127
  Receipt Date: 20251127
  Transmission Date: 20260118
  Serious: No
  Sender: ALKEM
  Company Number: JP-ALKEM LABORATORIES LIMITED-JP-ALKEM-2025-07860

PATIENT
  Age: 43 Year
  Sex: Female
  Weight: 37 kg

DRUGS (9)
  1. METFORMIN HYDROCHLORIDE [Suspect]
     Active Substance: METFORMIN HYDROCHLORIDE
     Indication: Metabolic syndrome
     Dosage: 2000 MG/DAY
     Route: 065
  2. METFORMIN HYDROCHLORIDE [Suspect]
     Active Substance: METFORMIN HYDROCHLORIDE
     Dosage: 2250 MG/DAY
     Route: 065
  3. INSULIN NOS [Suspect]
     Active Substance: INSULIN NOS
     Indication: Diabetes mellitus
     Dosage: UNK
     Route: 065
  4. INSULIN NOS [Suspect]
     Active Substance: INSULIN NOS
     Dosage: 214 UNITS, QD
     Route: 065
  5. INSULIN NOS [Suspect]
     Active Substance: INSULIN NOS
     Dosage: UNK (90-100 UNITS PER DAY) (REDUCED DOSE)
     Route: 065
  6. INSULIN NOS [Suspect]
     Active Substance: INSULIN NOS
     Dosage: 230 UNITS, QD (WITHOUT METFORMIN)
     Route: 065
  7. INSULIN NOS [Suspect]
     Active Substance: INSULIN NOS
     Dosage: 50 UNITS, QD (REDUCED DOSE)
     Route: 065
  8. INSULIN NOS [Suspect]
     Active Substance: INSULIN NOS
     Dosage: 112 UNITS, QD (PREDELIVERY DOSE) (WITH METFORMIN)
     Route: 065
  9. PIOGLITAZONE [Suspect]
     Active Substance: PIOGLITAZONE
     Indication: Metabolic syndrome
     Dosage: 15 MG/DAY
     Route: 065

REACTIONS (2)
  - Exposure during pregnancy [Unknown]
  - Product use issue [Unknown]
